FAERS Safety Report 4646791-6 (Version None)
Quarter: 2005Q2

REPORT INFORMATION
  Report Type: 
  Country: None (occurrence: None)
  Receive Date: 20050427
  Receipt Date: 20050419
  Transmission Date: 20051028
  Serious: Yes (Hospitalization)
  Sender: FDA-Public Use
  Company Number: US-BRISTOL-MYERS SQUIBB COMPANY-12939468

PATIENT
  Age: 65 Year
  Sex: Female
  Weight: 129 kg

DRUGS (11)
  1. WARFARIN SODIUM [Suspect]
     Indication: PROPHYLAXIS
     Dates: start: 20041203, end: 20050325
  2. DIGOXIN [Concomitant]
  3. HYDROCHLOROTHIAZIDE [Concomitant]
     Dosage: 1-2 ONCE DAILY FOR LOWER EXTREMITY SWELLING
  4. COZAAR [Concomitant]
  5. EFFEXOR [Concomitant]
  6. LAMICTAL [Concomitant]
  7. CARAFATE [Concomitant]
  8. ALLEGRA [Concomitant]
  9. SYNTHROID [Concomitant]
  10. FLONASE [Concomitant]
  11. ADVAIR DISKUS 100/50 [Concomitant]
     Indication: WHEEZING

REACTIONS (2)
  - GASTRIC ULCER [None]
  - GASTROINTESTINAL HAEMORRHAGE [None]
